FAERS Safety Report 15226976 (Version 4)
Quarter: 2018Q4

REPORT INFORMATION
  Report Type: Spontaneous
  Country: FR (occurrence: FR)
  Receive Date: 20180801
  Receipt Date: 20181222
  Transmission Date: 20190204
  Serious: Yes (Hospitalization, Other)
  Sender: FDA-Public Use
  Company Number: PHHY2018FR055732

PATIENT
  Age: 43 Year
  Sex: Male

DRUGS (4)
  1. QUETIAPINE FUMARATE. [Suspect]
     Active Substance: QUETIAPINE FUMARATE
     Indication: PRODUCT USED FOR UNKNOWN INDICATION
     Dosage: UNK
     Route: 048
  2. ZOPICLONE [Suspect]
     Active Substance: ZOPICLONE
     Indication: PRODUCT USED FOR UNKNOWN INDICATION
     Dosage: UNK
     Route: 065
  3. DIAZEPAM. [Suspect]
     Active Substance: DIAZEPAM
     Indication: PRODUCT USED FOR UNKNOWN INDICATION
     Route: 065
  4. VITAMIN B1 [Concomitant]
     Active Substance: THIAMINE HYDROCHLORIDE
     Indication: PRODUCT USED FOR UNKNOWN INDICATION
     Route: 065

REACTIONS (12)
  - Ataxia [Recovering/Resolving]
  - Toxicity to various agents [Recovering/Resolving]
  - Gamma-glutamyltransferase increased [Unknown]
  - Wernicke^s encephalopathy [Unknown]
  - Poisoning deliberate [Unknown]
  - Intentional overdose [Unknown]
  - Altered state of consciousness [Recovered/Resolved]
  - Alcohol poisoning [Unknown]
  - Confusional state [Recovered/Resolved]
  - Intentional product misuse [Unknown]
  - Agitation [Recovering/Resolving]
  - Nystagmus [Recovering/Resolving]
